FAERS Safety Report 10871776 (Version 1)
Quarter: 2015Q1

REPORT INFORMATION
  Report Type: Spontaneous
  Country: US (occurrence: US)
  Receive Date: 20150226
  Receipt Date: 20150226
  Transmission Date: 20150721
  Serious: No
  Sender: FDA-Public Use
  Company Number: US-BAYER-2015-029084

PATIENT

DRUGS (1)
  1. ALEVE [Suspect]
     Active Substance: NAPROXEN SODIUM
     Indication: SINUSITIS
     Dosage: 8 DF, UNK
     Route: 048
     Dates: start: 20150223

REACTIONS (2)
  - Extra dose administered [Unknown]
  - Medication error [Unknown]

NARRATIVE: CASE EVENT DATE: 20150223
